FAERS Safety Report 25539534 (Version 1)
Quarter: 2025Q3

REPORT INFORMATION
  Report Type: Spontaneous
  Country: GB (occurrence: GB)
  Receive Date: 20250710
  Receipt Date: 20250710
  Transmission Date: 20251020
  Serious: Yes (Hospitalization, Disabling, Other)
  Sender: ELI LILLY AND COMPANY
  Company Number: GB-MHRA-WEBRADR-202506261024387580-LMTJZ

PATIENT
  Age: 29 Year
  Sex: Female
  Weight: 91 kg

DRUGS (2)
  1. MOUNJARO [Suspect]
     Active Substance: TIRZEPATIDE
     Indication: Weight control
     Route: 003
     Dates: start: 20240809
  2. MOUNJARO [Suspect]
     Active Substance: TIRZEPATIDE
     Route: 003
     Dates: end: 20240905

REACTIONS (7)
  - Syncope [Unknown]
  - Cholelithiasis [Unknown]
  - Pancreatitis acute [Recovered/Resolved with Sequelae]
  - Procedural pain [Unknown]
  - Post procedural diarrhoea [Unknown]
  - Incorrect route of product administration [Unknown]
  - Abdominal distension [Unknown]

NARRATIVE: CASE EVENT DATE: 20240809
